FAERS Safety Report 6242329-0 (Version None)
Quarter: 2009Q2

REPORT INFORMATION
  Report Type: 
  Country: None (occurrence: None)
  Receive Date: 20090624
  Receipt Date: 20090615
  Transmission Date: 20091009
  Serious: Yes (Hospitalization)
  Sender: FDA-Public Use
  Company Number: US-BIOGENIDEC-2009BI006689

PATIENT
  Age: 67 Year
  Sex: Female

DRUGS (1)
  1. TYSABRI [Suspect]
     Indication: MULTIPLE SCLEROSIS
     Route: 042
     Dates: start: 20080529, end: 20090201

REACTIONS (8)
  - ABASIA [None]
  - ANAEMIA [None]
  - BALANCE DISORDER [None]
  - CELLULITIS [None]
  - MALAISE [None]
  - MELAENA [None]
  - PNEUMONIA [None]
  - URINARY TRACT INFECTION [None]
